FAERS Safety Report 4345336-8 (Version None)
Quarter: 2004Q2

REPORT INFORMATION
  Report Type: 
  Country: None (occurrence: None)
  Receive Date: 20040420
  Receipt Date: 20040407
  Transmission Date: 20050107
  Serious: Yes (Other)
  Sender: FDA-Public Use
  Company Number: 200411689BCC

PATIENT
  Sex: Female

DRUGS (12)
  1. ALEVE COLD AND SINUS [Suspect]
     Indication: NASOPHARYNGITIS
     Dosage: 220/120 MG, QD, ORAL
     Route: 048
     Dates: start: 20040331, end: 20040406
  2. HUMULIN N [Concomitant]
  3. HUMULIN R [Concomitant]
  4. PHENYTOIN [Concomitant]
  5. BUSPIRONE HCL [Concomitant]
  6. ENALAPRIL MALEATE [Concomitant]
  7. DYAZIDE [Concomitant]
  8. GUAIPHENESIN [Concomitant]
  9. ZOCOR [Concomitant]
  10. L-THYROXINE [Concomitant]
  11. CYCLOBENZAPRINE HYDROCHLORIDE [Concomitant]
  12. ASPIRIN [Concomitant]

REACTIONS (3)
  - EPISTAXIS [None]
  - EYE HAEMORRHAGE [None]
  - SLUGGISHNESS [None]
